FAERS Safety Report 21377873 (Version 1)
Quarter: 2022Q3

REPORT INFORMATION
  Report Type: Spontaneous
  Country: JP (occurrence: JP)
  Receive Date: 20220926
  Receipt Date: 20220926
  Transmission Date: 20221026
  Serious: Yes (Hospitalization)
  Sender: FDA-Public Use
  Company Number: JP-Merck Healthcare KGaA-9352035

PATIENT
  Age: 51 Year
  Sex: Female

DRUGS (2)
  1. ERBITUX [Suspect]
     Active Substance: CETUXIMAB
     Indication: Nasopharyngeal cancer
     Dosage: UNK, UNKNOWN
     Route: 041
  2. PACLITAXEL [Suspect]
     Active Substance: PACLITAXEL
     Indication: Nasopharyngeal cancer
     Dosage: UNK, UNKNOWN
     Route: 041

REACTIONS (6)
  - Myocarditis [Recovered/Resolved]
  - Cardiac failure acute [Unknown]
  - Face oedema [Unknown]
  - Urticaria [Recovered/Resolved]
  - Toxic skin eruption [Unknown]
  - Off label use [Unknown]
